FAERS Safety Report 9773119 (Version 2)
Quarter: 2014Q2

REPORT INFORMATION
  Report Type: Spontaneous
  Country: US (occurrence: US)
  Receive Date: 20131219
  Receipt Date: 20140506
  Transmission Date: 20141212
  Serious: Yes (Hospitalization, Disabling)
  Sender: FDA-Public Use
  Company Number: US-B.I. PHARMACEUTICALS,INC./RIDGEFIELD-2013-BI-42063BP

PATIENT
  Age: 60 Year
  Sex: Female
  Weight: 68 kg

DRUGS (12)
  1. COMBIVENT [Suspect]
     Indication: ASTHMA
     Dosage: DOSE PER APPLICATION: 18 MCG / 103 MCG;
     Route: 055
     Dates: start: 1996, end: 201312
  2. ADVAIR [Concomitant]
     Indication: ASTHMA
     Dosage: DOSE PER APPLICATION : 250/ 50 MCG, DAILY DOSE:500/ 100 MCG
     Route: 055
  3. SYNTHROID [Concomitant]
     Indication: HYPOTHYROIDISM
     Route: 048
  4. HYDROCHLOROTHIAZIDE [Concomitant]
     Indication: HYPERTENSION
     Dosage: 25 MG
     Route: 048
  5. LEXAPRO [Concomitant]
     Indication: DEPRESSION
     Dosage: 10 MG
     Route: 048
  6. WELLBUTRIN SR [Concomitant]
     Indication: DEPRESSION
     Dosage: 450 MG
     Route: 048
  7. KLONIPIN [Concomitant]
     Indication: ANXIETY
     Dosage: 1 MG
     Route: 048
  8. LYRICA [Concomitant]
     Indication: NEURALGIA
     Dosage: 75 MG
     Route: 048
  9. TIZANIDINE [Concomitant]
     Indication: MUSCLE SPASMS
     Dosage: 12 MG
     Route: 048
  10. DILAUDID [Concomitant]
     Indication: BACK PAIN
     Dosage: 16 MG
     Route: 048
  11. SUMATRIPTAN [Concomitant]
     Indication: MIGRAINE
     Route: 048
  12. PROAIR HFA [Concomitant]
     Indication: ASTHMA
     Route: 055

REACTIONS (26)
  - Intervertebral disc degeneration [Recovered/Resolved]
  - Spinal column stenosis [Recovered/Resolved]
  - Scoliosis [Not Recovered/Not Resolved]
  - Intervertebral disc protrusion [Not Recovered/Not Resolved]
  - Bronchitis [Not Recovered/Not Resolved]
  - Sciatica [Not Recovered/Not Resolved]
  - Intervertebral disc protrusion [Not Recovered/Not Resolved]
  - Spinal cord disorder [Not Recovered/Not Resolved]
  - Intervertebral disc protrusion [Not Recovered/Not Resolved]
  - Abasia [Recovered/Resolved]
  - Fatigue [Not Recovered/Not Resolved]
  - Fall [Recovered/Resolved]
  - Productive cough [Not Recovered/Not Resolved]
  - Wheezing [Not Recovered/Not Resolved]
  - Orthopnoea [Not Recovered/Not Resolved]
  - Tremor [Not Recovered/Not Resolved]
  - Fall [Recovered/Resolved]
  - Fall [Recovered/Resolved]
  - Joint injury [Not Recovered/Not Resolved]
  - Cough [Not Recovered/Not Resolved]
  - Wheezing [Not Recovered/Not Resolved]
  - Fall [Recovered/Resolved]
  - Ligament sprain [Not Recovered/Not Resolved]
  - Dyspnoea [Recovered/Resolved]
  - Productive cough [Not Recovered/Not Resolved]
  - Off label use [Recovered/Resolved]
